FAERS Safety Report 6983639-9 (Version None)
Quarter: 2010Q3

REPORT INFORMATION
  Report Type: 
  Country: None (occurrence: None)
  Receive Date: 20100914
  Receipt Date: 20081016
  Transmission Date: 20110219
  Serious: No
  Sender: FDA-Public Use
  Company Number: US-WYE-H06434908

PATIENT
  Sex: Female

DRUGS (1)
  1. ADVIL LIQUI-GELS [Suspect]
     Indication: PYREXIA
     Dosage: 6 TABLETS AT ONE TIME
     Route: 048
     Dates: start: 20081015, end: 20081015

REACTIONS (2)
  - HEADACHE [None]
  - INCORRECT DOSE ADMINISTERED [None]
